FAERS Safety Report 8179722-5 (Version None)
Quarter: 2012Q1

REPORT INFORMATION
  Report Type: 
  Country: None (occurrence: None)
  Receive Date: 20120302
  Receipt Date: 20120221
  Transmission Date: 20120608
  Serious: Yes (Hospitalization, Other)
  Sender: FDA-Public Use
  Company Number: US-JNJFOC-20120211603

PATIENT
  Age: 6 Decade
  Sex: Male

DRUGS (3)
  1. XARELTO [Suspect]
     Indication: KNEE ARTHROPLASTY
     Route: 048
     Dates: start: 20111201
  2. NSAID [Concomitant]
  3. ULTRAM [Suspect]
     Indication: KNEE ARTHROPLASTY
     Dates: start: 20111201

REACTIONS (4)
  - VOMITING [None]
  - OESOPHAGEAL HAEMORRHAGE [None]
  - RETCHING [None]
  - OESOPHAGEAL RUPTURE [None]
